FAERS Safety Report 17214784 (Version 1)
Quarter: 2019Q4

REPORT INFORMATION
  Report Type: Report from Study
  Country: GB (occurrence: GB)
  Receive Date: 20191230
  Receipt Date: 20191230
  Transmission Date: 20200122
  Serious: Yes (Other)
  Sender: FDA-Public Use
  Company Number: GB-JNJFOC-20191234487

PATIENT
  Age: 40 Year
  Sex: Female
  Weight: 59 kg

DRUGS (14)
  1. VENLAFAXINE [Concomitant]
     Active Substance: VENLAFAXINE HYDROCHLORIDE
     Route: 048
     Dates: start: 20191126
  2. ZOPICLONE [Concomitant]
     Active Substance: ZOPICLONE
     Indication: INSOMNIA
     Route: 048
     Dates: start: 20191016
  3. ZOLMITRIPTAN. [Concomitant]
     Active Substance: ZOLMITRIPTAN
     Indication: MIGRAINE
     Route: 048
     Dates: start: 20150624
  4. ISOTRETINOIN. [Concomitant]
     Active Substance: ISOTRETINOIN
     Indication: ACNE
     Route: 061
     Dates: start: 20160919
  5. FERROUS FUMARATE [Concomitant]
     Active Substance: FERROUS FUMARATE
     Indication: HAEMATOCRIT DECREASED
     Route: 048
     Dates: start: 20180502
  6. FENBID [Concomitant]
     Active Substance: IBUPROFEN
     Indication: ARTHRALGIA
     Route: 061
     Dates: start: 201612
  7. ZOLPIDEM [Concomitant]
     Active Substance: ZOLPIDEM TARTRATE
     Indication: INSOMNIA
     Route: 048
     Dates: start: 20170712
  8. DIAZEPAM. [Concomitant]
     Active Substance: DIAZEPAM
     Indication: DEPRESSION
     Dosage: 1-2 TABLETS AS NEEDED
     Route: 048
     Dates: start: 20170406
  9. CORSODYL [Concomitant]
     Active Substance: CHLORHEXIDINE GLUCONATE
     Indication: TOOTHACHE
     Route: 048
     Dates: start: 20191031
  10. CODEINE [Concomitant]
     Active Substance: CODEINE
     Indication: TOOTHACHE
     Dosage: THREE TIME DAILY AS NEEDED
     Route: 048
     Dates: start: 20191028, end: 20191103
  11. ACNECIDE [Concomitant]
     Active Substance: BENZOYL PEROXIDE
     Indication: ACNE
     Route: 061
     Dates: start: 20170331
  12. VENLAFAXINE [Concomitant]
     Active Substance: VENLAFAXINE HYDROCHLORIDE
     Indication: DEPRESSION
     Route: 048
     Dates: start: 20190418, end: 20191125
  13. ESKETAMINE [Suspect]
     Active Substance: ESKETAMINE
     Indication: DEPRESSION
     Dates: start: 20170413
  14. MIRENA [Concomitant]
     Active Substance: LEVONORGESTREL
     Indication: PROPHYLAXIS
     Route: 015
     Dates: start: 20180702

REACTIONS (1)
  - Suicidal ideation [Recovered/Resolved]

NARRATIVE: CASE EVENT DATE: 20191113
